FAERS Safety Report 17269728 (Version 1)
Quarter: 2020Q1

REPORT INFORMATION
  Report Type: Spontaneous
  Country: US (occurrence: US)
  Receive Date: 20200114
  Receipt Date: 20200114
  Transmission Date: 20200409
  Serious: Yes (Death, Hospitalization)
  Sender: FDA-Public Use
  Company Number: US-BAYER-2020-004214

PATIENT
  Age: 39 Year
  Sex: Male

DRUGS (4)
  1. CANAL CLEANER (SODIUM HYPOCHLORITE) [Suspect]
     Active Substance: SODIUM HYPOCHLORITE
  2. ALCOHOL. [Suspect]
     Active Substance: ALCOHOL
  3. BENZOYL PEROXIDE. [Suspect]
     Active Substance: BENZOYL PEROXIDE
  4. HYDROGEN PEROXIDE. [Suspect]
     Active Substance: HYDROGEN PEROXIDE

REACTIONS (1)
  - Toxicity to various agents [Fatal]
